FAERS Safety Report 19267733 (Version 1)
Quarter: 2021Q2

REPORT INFORMATION
  Report Type: Spontaneous
  Country: US (occurrence: US)
  Receive Date: 20210518
  Receipt Date: 20210518
  Transmission Date: 20210717
  Serious: No
  Sender: FDA-Public Use
  Company Number: US-CIPLA LTD.-2020US09564

PATIENT

DRUGS (3)
  1. CLARITIN [Concomitant]
     Active Substance: LORATADINE
     Indication: ANTIALLERGIC THERAPY
     Dosage: 5 MILLIGRAM, PRN (ONCE A DAY WHEN NEEDED) (SEASONALLY ? SPRING + FALL)
     Route: 065
  2. TOPIRAMATE. [Suspect]
     Active Substance: TOPIRAMATE
     Indication: VESTIBULAR MIGRAINE
     Dosage: 25 MILLIGRAM, QD (ONCE A DAY IN THE EVENING)
     Route: 065
     Dates: start: 20201214
  3. VITAMINS NOS [Concomitant]
     Active Substance: VITAMINS
     Indication: VESTIBULAR MIGRAINE
     Dosage: UNK UNK, QD
     Route: 065
     Dates: start: 202011

REACTIONS (4)
  - Headache [Not Recovered/Not Resolved]
  - Sinusitis [Not Recovered/Not Resolved]
  - Facial pain [Not Recovered/Not Resolved]
  - Epistaxis [Unknown]

NARRATIVE: CASE EVENT DATE: 202012
